FAERS Safety Report 16945014 (Version 2)
Quarter: 2019Q4

REPORT INFORMATION
  Report Type: Spontaneous
  Country: BR (occurrence: BR)
  Receive Date: 20191022
  Receipt Date: 20191111
  Transmission Date: 20200122
  Serious: Yes (Hospitalization, Other)
  Sender: FDA-Public Use
  Company Number: BR-ABBVIE-18P-020-2457430-00

PATIENT
  Age: 49 Year
  Sex: Female
  Weight: 52 kg

DRUGS (16)
  1. DEPAKOTE [Suspect]
     Active Substance: DIVALPROEX SODIUM
     Indication: MIGRAINE
     Route: 048
     Dates: start: 201506
  2. RECONTER [Suspect]
     Active Substance: ESCITALOPRAM OXALATE
     Indication: AMNESIA
  3. DEPAKENE [Suspect]
     Active Substance: VALPROIC ACID
     Indication: HEADACHE
     Dosage: FREQUENCY: 1 CAPSULE AT NIGHT
     Route: 048
     Dates: start: 20180610
  4. DEPAKENE [Suspect]
     Active Substance: VALPROIC ACID
     Indication: BEHAVIOUR DISORDER
  5. DEPAKOTE [Suspect]
     Active Substance: DIVALPROEX SODIUM
     Indication: MOOD ALTERED
  6. RECONTER [Suspect]
     Active Substance: ESCITALOPRAM OXALATE
     Indication: DEPRESSION
     Dosage: FREQUENCY: 1TABLET IN THE MORNING, AFTERNOON IF REQUIRED. DD 2 TABLET
     Route: 048
     Dates: start: 201706
  7. ALPRAZOLAM. [Concomitant]
     Active Substance: ALPRAZOLAM
     Indication: INSOMNIA
     Dosage: FREQUENCY: HALF A TABLET IN THE MORNING AND 1 TABLET AT NIGHT
     Route: 048
     Dates: start: 2015
  8. DEPAKENE [Suspect]
     Active Substance: VALPROIC ACID
     Indication: DEPRESSION
     Route: 048
     Dates: start: 20180804, end: 20180805
  9. RECONTER [Suspect]
     Active Substance: ESCITALOPRAM OXALATE
     Indication: CRYING
     Dosage: MORNING/NIGHT
     Route: 048
  10. ALPRAZOLAM. [Concomitant]
     Active Substance: ALPRAZOLAM
     Indication: FEELING JITTERY
  11. ALPRAZOLAM. [Concomitant]
     Active Substance: ALPRAZOLAM
     Indication: AGITATION
  12. DEPAKOTE ER [Suspect]
     Active Substance: DIVALPROEX SODIUM
     Indication: INSOMNIA
     Dosage: WAS NOT ADMINISTERED AFTER INCORRECT DISPENSING
     Route: 065
  13. DEPAKOTE [Suspect]
     Active Substance: DIVALPROEX SODIUM
     Indication: INSOMNIA
  14. DEPAKENE [Suspect]
     Active Substance: VALPROIC ACID
     Indication: AFFECT LABILITY
  15. DEPAKOTE [Suspect]
     Active Substance: DIVALPROEX SODIUM
     Indication: AMNESIA
  16. RECONTER [Suspect]
     Active Substance: ESCITALOPRAM OXALATE
     Indication: ANXIETY

REACTIONS (29)
  - Discomfort [Unknown]
  - Unevaluable event [Unknown]
  - Insomnia [Recovered/Resolved]
  - Sensory disturbance [Recovered/Resolved]
  - Mental disorder [Unknown]
  - Dyspepsia [Not Recovered/Not Resolved]
  - Amnesia [Recovered/Resolved]
  - Unevaluable event [Recovered/Resolved]
  - Decreased appetite [Recovered/Resolved]
  - Product dispensing error [Unknown]
  - Cerebrovascular accident [Unknown]
  - Feeling jittery [Unknown]
  - Migraine [Recovered/Resolved]
  - Disease complication [Recovered/Resolved]
  - Hemiparesis [Unknown]
  - Product use in unapproved indication [Unknown]
  - Hypoaesthesia [Unknown]
  - Coordination abnormal [Unknown]
  - Speech disorder [Unknown]
  - Weight decreased [Unknown]
  - Malaise [Recovered/Resolved]
  - Tremor [Recovering/Resolving]
  - Diarrhoea [Recovered/Resolved]
  - Seizure [Recovered/Resolved]
  - Dizziness [Recovered/Resolved]
  - Abdominal rigidity [Not Recovered/Not Resolved]
  - Nervousness [Recovered/Resolved]
  - Confusional state [Recovered/Resolved]
  - Bradyphrenia [Recovered/Resolved]

NARRATIVE: CASE EVENT DATE: 2017
